FAERS Safety Report 17474677 (Version 1)
Quarter: 2020Q1

REPORT INFORMATION
  Report Type: Spontaneous
  Country: ES (occurrence: ES)
  Receive Date: 20200228
  Receipt Date: 20200228
  Transmission Date: 20200409
  Serious: Yes (Hospitalization)
  Sender: FDA-Public Use
  Company Number: ES-ROCHE-2552890

PATIENT
  Age: 70 Year
  Sex: Male

DRUGS (11)
  1. ESBRIET [Suspect]
     Active Substance: PIRFENIDONE
     Indication: IDIOPATHIC PULMONARY FIBROSIS
     Route: 048
     Dates: start: 20191003, end: 20200107
  2. ROSUVASTATINA [ROSUVASTATIN] [Suspect]
     Active Substance: ROSUVASTATIN
     Indication: DYSLIPIDAEMIA
     Route: 048
     Dates: start: 20181205, end: 20200107
  3. EZETIMIBA [Suspect]
     Active Substance: EZETIMIBE
     Indication: DYSLIPIDAEMIA
     Route: 048
     Dates: start: 20190620, end: 20200107
  4. EUTIROX [Concomitant]
     Active Substance: LEVOTHYROXINE SODIUM
     Indication: HYPOPITUITARISM
     Route: 048
     Dates: start: 20200124
  5. EBASTEL [Concomitant]
     Active Substance: EBASTINE
     Dosage: 10
     Route: 048
     Dates: start: 20190530
  6. LERCANIDIPINO [Concomitant]
     Indication: HYPERTENSION
     Dosage: 10
     Route: 065
     Dates: start: 20190426
  7. ADIRO [Concomitant]
     Active Substance: ASPIRIN
     Indication: MYOCARDIAL ISCHAEMIA
     Dosage: 100
     Route: 048
     Dates: start: 20161014
  8. PANTOPRAZOL [PANTOPRAZOLE] [Concomitant]
     Active Substance: PANTOPRAZOLE
     Dosage: 20
     Route: 048
     Dates: start: 20191008
  9. RAMIPRIL. [Concomitant]
     Active Substance: RAMIPRIL
     Indication: HYPERTENSION
     Dosage: 10
     Route: 048
     Dates: start: 20181116
  10. HIDROALTESONA [Concomitant]
     Active Substance: HYDROCORTISONE
     Indication: HYPOPITUITARISM
     Dosage: 20
     Route: 048
     Dates: start: 20081128
  11. BISOPROLOL [Concomitant]
     Active Substance: BISOPROLOL
     Dosage: 2.5
     Route: 048
     Dates: start: 20180803

REACTIONS (3)
  - Hyperbilirubinaemia [Recovering/Resolving]
  - Hepatitis [Recovering/Resolving]
  - Hypocoagulable state [Recovered/Resolved]

NARRATIVE: CASE EVENT DATE: 20200107
